FAERS Safety Report 17688685 (Version 4)
Quarter: 2021Q1

REPORT INFORMATION
  Report Type: Spontaneous
  Country: CA (occurrence: CA)
  Receive Date: 20200421
  Receipt Date: 20210331
  Transmission Date: 20210419
  Serious: Yes (Other)
  Sender: FDA-Public Use
  Company Number: CA-SAMSUNG BIOEPIS-SB-2020-13522

PATIENT
  Age: 58 Year
  Sex: Male

DRUGS (2)
  1. METHOTREXATE. [Concomitant]
     Active Substance: METHOTREXATE
     Indication: PRODUCT USED FOR UNKNOWN INDICATION
     Route: 048
  2. INFLIXIMAB [Suspect]
     Active Substance: INFLIXIMAB
     Indication: PSORIATIC ARTHROPATHY
     Route: 042

REACTIONS (9)
  - Hypertension [Unknown]
  - Arthralgia [Unknown]
  - Intentional product use issue [Unknown]
  - Blood pressure increased [Unknown]
  - Joint stiffness [Unknown]
  - Off label use [Unknown]
  - Incorrect dose administered [Unknown]
  - Heart rate decreased [Unknown]
  - Blood pressure fluctuation [Unknown]
